FAERS Safety Report 4835511-8 (Version None)
Quarter: 2005Q4

REPORT INFORMATION
  Report Type: 
  Country: None (occurrence: None)
  Receive Date: 20051121
  Receipt Date: 20051107
  Transmission Date: 20060501
  Serious: Yes (Death, Other)
  Sender: FDA-Public Use
  Company Number: 2005107341

PATIENT
  Age: 29 Year
  Sex: Male
  Weight: 105.6881 kg

DRUGS (2)
  1. NEURONTIN [Suspect]
     Indication: BIPOLAR DISORDER
     Dates: start: 20030517
  2. SEROQUEL [Suspect]
     Indication: ILL-DEFINED DISORDER

REACTIONS (3)
  - COMPLETED SUICIDE [None]
  - DRUG INEFFECTIVE [None]
  - OVERDOSE [None]
